FAERS Safety Report 16802224 (Version 1)
Quarter: 2019Q3

REPORT INFORMATION
  Report Type: Spontaneous
  Country: IT (occurrence: IT)
  Receive Date: 20190912
  Receipt Date: 20190912
  Transmission Date: 20191005
  Serious: Yes (Other)
  Sender: FDA-Public Use
  Company Number: IT-PFIZER INC-2019150829

PATIENT
  Age: 25 Year
  Sex: Male

DRUGS (2)
  1. XANAX [Suspect]
     Active Substance: ALPRAZOLAM
     Dosage: 4 MG, (TOTAL)
  2. SERENASE [BENZYL ALCOHOL;HALOPERIDOL DECANOATE;SESAMUM INDICUM SEED OI [Suspect]
     Active Substance: HALOPERIDOL DECANOATE
     Dosage: 15 ML, (TOTAL)
     Route: 048

REACTIONS (2)
  - Intentional product misuse [Unknown]
  - Toxicity to various agents [Unknown]

NARRATIVE: CASE EVENT DATE: 20190131
